FAERS Safety Report 9019323 (Version 2)
Quarter: 2013Q1

REPORT INFORMATION
  Report Type: Spontaneous
  Country: DE (occurrence: DE)
  Receive Date: 20130118
  Receipt Date: 20130220
  Transmission Date: 20140127
  Serious: Yes (Death, Hospitalization, Other)
  Sender: FDA-Public Use
  Company Number: DE-B.I. PHARMACEUTICALS,INC./RIDGEFIELD-2013-DE-00107DE

PATIENT
  Age: 90 None
  Sex: Female
  Weight: 50 kg

DRUGS (14)
  1. PRADAXA [Suspect]
     Indication: BRADYARRHYTHMIA
     Dosage: 220 MG
     Dates: start: 201210, end: 20121102
  2. PRADAXA [Suspect]
     Indication: ATRIAL FIBRILLATION
  3. PRADAXA [Suspect]
     Indication: CEREBROVASCULAR ACCIDENT
  4. METOPROLOL [Concomitant]
     Indication: HYPERTENSION
  5. HCT 25 [Concomitant]
     Indication: HYPERTENSION
  6. EUTHYROX [Concomitant]
  7. ASS 100 [Concomitant]
     Indication: CORONARY ARTERY DISEASE
  8. PENTALONG 80 [Concomitant]
  9. CARDIODORON MITE 50 [Concomitant]
  10. NOVALGIN 500 [Concomitant]
  11. PANTOPRAZOL 20 [Concomitant]
  12. MCP [Concomitant]
  13. IBUPROFEN 600 [Concomitant]
     Indication: BACK DISORDER
  14. VERTIGO HEEL [Concomitant]

REACTIONS (6)
  - Peripheral embolism [Fatal]
  - Cerebral haemorrhage [Fatal]
  - Frontotemporal dementia [Unknown]
  - Convulsion [Unknown]
  - Skin necrosis [Unknown]
  - Melaena [Unknown]
